FAERS Safety Report 16913885 (Version 1)
Quarter: 2019Q4

REPORT INFORMATION
  Report Type: Spontaneous
  Country: US (occurrence: US)
  Receive Date: 20191014
  Receipt Date: 20191014
  Transmission Date: 20200122
  Serious: Yes (Death, Hospitalization)
  Sender: FDA-Public Use
  Company Number: US-MYLANLABS-2019M1095125

PATIENT
  Age: 23 Year
  Sex: Male

DRUGS (2)
  1. TACROLIMUS. [Suspect]
     Active Substance: TACROLIMUS
     Indication: IMMUNOSUPPRESSANT DRUG THERAPY
     Route: 065
  2. METHYLPREDNISOLONE. [Suspect]
     Active Substance: METHYLPREDNISOLONE
     Indication: IMMUNOSUPPRESSANT DRUG THERAPY
     Route: 065

REACTIONS (7)
  - Fusarium infection [Fatal]
  - Spinal cord oedema [Unknown]
  - Spinal cord infection [Fatal]
  - Paresis [Unknown]
  - Cardio-respiratory arrest [Unknown]
  - Spinal cord abscess [Recovering/Resolving]
  - Vision blurred [Recovered/Resolved]
